FAERS Safety Report 10967293 (Version 1)
Quarter: 2015Q1

REPORT INFORMATION
  Report Type: Spontaneous
  Country: BR (occurrence: BR)
  Receive Date: 20150330
  Receipt Date: 20150330
  Transmission Date: 20150721
  Serious: Yes (Hospitalization)
  Sender: FDA-Public Use
  Company Number: BR-PFIZER INC-2015105533

PATIENT
  Age: 71 Year
  Sex: Male

DRUGS (2)
  1. DRUSOLOL [Concomitant]
     Dosage: 1 DROP IN EACH EYE, 2X/DAY
  2. XALATAN [Suspect]
     Active Substance: LATANOPROST
     Indication: GLAUCOMA
     Dosage: 1 DROP IN EACH EYE, 1X/DAY
     Route: 047

REACTIONS (3)
  - Bone disorder [Unknown]
  - Activities of daily living impaired [Unknown]
  - Fibromyalgia [Unknown]
